FAERS Safety Report 8531984-8 (Version None)
Quarter: 2012Q3

REPORT INFORMATION
  Report Type: 
  Country: None (occurrence: None)
  Receive Date: 20120723
  Receipt Date: 20120713
  Transmission Date: 20120928
  Serious: Yes (Other)
  Sender: FDA-Public Use
  Company Number: PHFR2012GB003983

PATIENT
  Sex: Female
  Weight: 50 kg

DRUGS (8)
  1. ALENDRONATE SODIUM [Concomitant]
     Dosage: 70 MG, UNK
  2. OMEPRAZOLE MAGNESIUM [Concomitant]
     Dosage: 40 MG, UNK
  3. SIMVASTATIN [Concomitant]
     Dosage: 50 MG, UNK
  4. PREDNISOLONE [Suspect]
     Indication: SARCOIDOSIS
     Dosage: 10 MG, UNK
     Route: 048
     Dates: start: 20051120
  5. CARBAMAZEPINE [Suspect]
     Indication: EPILEPSY
     Dosage: 150 MG, UNK
     Route: 048
     Dates: start: 20111109
  6. AZATHIOPRINE [Concomitant]
     Dosage: 100 MG, UNK
  7. LAMOTRIGINE [Concomitant]
     Dosage: 50 MG, BID
  8. DICLOFENAC [Suspect]
     Indication: OSTEOPOROSIS
     Dosage: 150 MG, UNK
     Route: 048
     Dates: start: 20051110

REACTIONS (1)
  - GAIT DISTURBANCE [None]
